FAERS Safety Report 9175289 (Version 3)
Quarter: 2013Q3

REPORT INFORMATION
  Report Type: Spontaneous
  Country: FR (occurrence: FR)
  Receive Date: 20130320
  Receipt Date: 20130710
  Transmission Date: 20140515
  Serious: Yes (Life-Threatening, Hospitalization)
  Sender: FDA-Public Use
  Company Number: FR-ROCHE-1202089

PATIENT
  Sex: Male
  Weight: 90 kg

DRUGS (2)
  1. MABTHERA [Suspect]
     Indication: IMMUNE THROMBOCYTOPENIC PURPURA
     Route: 042
     Dates: start: 201302
  2. AUGMENTIN [Suspect]
     Indication: PNEUMONIA
     Route: 048
     Dates: start: 20130201, end: 20130210

REACTIONS (2)
  - Liver disorder [Recovered/Resolved]
  - Hepatitis cholestatic [Recovered/Resolved]
